FAERS Safety Report 6376904-X (Version None)
Quarter: 2009Q3

REPORT INFORMATION
  Report Type: 
  Country: None (occurrence: None)
  Receive Date: 20090925
  Receipt Date: 20090921
  Transmission Date: 20100115
  Serious: Yes (Hospitalization, Other)
  Sender: FDA-Public Use
  Company Number: NL-ROCHE-647776

PATIENT
  Sex: Male
  Weight: 74 kg

DRUGS (19)
  1. VALGANCICLOVIR HCL [Suspect]
     Indication: DRUG USE FOR UNKNOWN INDICATION
     Route: 065
     Dates: start: 20081029, end: 20090106
  2. VALGANCICLOVIR HCL [Suspect]
     Route: 065
     Dates: start: 20090203, end: 20090609
  3. MYCOPHENOLATE MOFETIL [Suspect]
     Route: 048
     Dates: start: 20081028
  4. CP-690550 [Suspect]
     Route: 048
     Dates: start: 20081029, end: 20090119
  5. PREDNISONE TAB [Suspect]
     Route: 048
     Dates: start: 20081030
  6. PREDNISONE TAB [Suspect]
     Route: 048
  7. PREDNISONE TAB [Suspect]
     Route: 048
     Dates: start: 20081202
  8. PREDNISONE TAB [Suspect]
     Route: 048
     Dates: start: 20090116
  9. PREDNISONE TAB [Suspect]
     Dosage: DOSE DECREASED; INTERRUPTED
     Route: 048
     Dates: start: 20090120, end: 20090127
  10. PREDNISONE TAB [Suspect]
     Route: 048
     Dates: start: 20090221
  11. TACROLIMUS [Suspect]
     Route: 048
     Dates: start: 20090119
  12. METHYLPREDNISOLONE 4MG TAB [Concomitant]
     Dates: start: 20081028
  13. METHYLPREDNISOLONE 4MG TAB [Concomitant]
     Dates: start: 20081030
  14. METHYLPREDNISOLONE 4MG TAB [Concomitant]
     Dates: start: 20090131, end: 20090202
  15. METHYLPREDNISOLONE 4MG TAB [Concomitant]
     Dosage: SPECIFIED AS ANTI-REJECTION THERAPY 2 TIMES
     Dates: start: 20090218, end: 20090220
  16. RANITIDINE [Concomitant]
     Dates: start: 20081125, end: 20090113
  17. NIFEDIPINE [Concomitant]
     Dates: start: 20081104
  18. METOPROLOL [Concomitant]
     Dates: start: 20081118, end: 20090106
  19. ENALAPRIL MALEATE [Concomitant]
     Route: 048
     Dates: start: 20090103

REACTIONS (3)
  - CYTOMEGALOVIRUS INFECTION [None]
  - MYOPATHY [None]
  - TRANSPLANT REJECTION [None]
